FAERS Safety Report 4901100-X (Version None)
Quarter: 2006Q1

REPORT INFORMATION
  Report Type: 
  Country: None (occurrence: None)
  Receive Date: 20060113
  Receipt Date: 20051012
  Transmission Date: 20060701
  Serious: No
  Sender: FDA-Public Use
  Company Number: 2005SP000598

PATIENT
  Age: 52 Year
  Sex: Female
  Weight: 81.1939 kg

DRUGS (7)
  1. LUNESTA [Suspect]
     Indication: INSOMNIA
     Dosage: 2 MG; HS; ORAL
     Route: 048
     Dates: start: 20050416, end: 20050418
  2. ZIAC [Concomitant]
  3. TOPROL-XL [Concomitant]
  4. SIMVASTATIN [Concomitant]
  5. PREVACID [Concomitant]
  6. ESTROGENS CONJUGATED [Concomitant]
  7. WELLBUTRIN [Concomitant]

REACTIONS (2)
  - CHEST DISCOMFORT [None]
  - CHEST PAIN [None]
